FAERS Safety Report 15456672 (Version 1)
Quarter: 2018Q4

REPORT INFORMATION
  Report Type: Spontaneous
  Country: CH (occurrence: CH)
  Receive Date: 20181002
  Receipt Date: 20181002
  Transmission Date: 20190204
  Serious: Yes (Congenital Anomaly, Other)
  Sender: FDA-Public Use
  Company Number: CH-PFIZER INC-2018389776

PATIENT
  Sex: Male
  Weight: 3.42 kg

DRUGS (6)
  1. TEMESTA (LORAZEPAM) [Suspect]
     Active Substance: LORAZEPAM
     Dosage: 2.5 MG, 3X/DAY
     Route: 064
  2. TEMESTA (LORAZEPAM) [Suspect]
     Active Substance: LORAZEPAM
     Dosage: 1 MG 4X/DAY, AS NEEDED
     Route: 064
  3. CLOPIXOL ACUPHASE [Concomitant]
     Active Substance: ZUCLOPENTHIXOL ACETATE
     Dosage: TREATMENT STOPPED FOLLOWING PREGNANCY DIAGNOSIS
     Route: 064
     Dates: end: 201801
  4. SEROQUEL [Suspect]
     Active Substance: QUETIAPINE FUMARATE
     Indication: SCHIZOTYPAL PERSONALITY DISORDER
     Dosage: 400 MG/DAY + 25 MG 3X/DAY, AS NEEDED
     Route: 064
     Dates: start: 20180606
  5. AKINETON [BIPERIDEN] [Concomitant]
     Dosage: TREATMENT STOPPED FOLLOWING PREGNANCY DIAGNOSIS
     Route: 064
     Dates: end: 201801
  6. REMERON RD [Concomitant]
     Active Substance: MIRTAZAPINE
     Dosage: TREATMENT STOPPED FOLLOWING PREGNANCY DIAGNOSIS
     Route: 064
     Dates: end: 201801

REACTIONS (4)
  - Bradycardia foetal [Recovered/Resolved]
  - Neonatal respiratory distress syndrome [Recovered/Resolved]
  - Maternal exposure during pregnancy [Recovered/Resolved]
  - Pneumothorax [Recovered/Resolved]

NARRATIVE: CASE EVENT DATE: 201711
